FAERS Safety Report 13425020 (Version 1)
Quarter: 2017Q2

REPORT INFORMATION
  Report Type: Spontaneous
  Country: DE (occurrence: DE)
  Receive Date: 20170410
  Receipt Date: 20170410
  Transmission Date: 20170830
  Serious: Yes (Death, Other)
  Sender: FDA-Public Use
  Company Number: DE-IPCA LABORATORIES LIMITED-IPC201607-000600

PATIENT
  Age: 58 Year
  Sex: Female

DRUGS (3)
  1. ILOPROST. [Concomitant]
     Active Substance: ILOPROST
  2. HYDROXYCHLOROQUINE SULFATE. [Suspect]
     Active Substance: HYDROXYCHLOROQUINE SULFATE
     Indication: SYSTEMIC SCLERODERMA
  3. SILDENAFIL. [Concomitant]
     Active Substance: SILDENAFIL

REACTIONS (3)
  - Cardiomyopathy [Unknown]
  - Cardiotoxicity [Unknown]
  - Cardiogenic shock [Fatal]
